FAERS Safety Report 18699485 (Version 1)
Quarter: 2021Q1

REPORT INFORMATION
  Report Type: Spontaneous
  Country: US (occurrence: US)
  Receive Date: 20210104
  Receipt Date: 20210104
  Transmission Date: 20210419
  Serious: No
  Sender: FDA-Public Use
  Company Number: US-PFIZER INC-2020520211

PATIENT
  Age: 74 Year
  Sex: Male

DRUGS (1)
  1. XELJANZ XR [Suspect]
     Active Substance: TOFACITINIB CITRATE
     Dosage: 11 MG
     Dates: start: 20201216

REACTIONS (3)
  - Arthralgia [Not Recovered/Not Resolved]
  - Back pain [Unknown]
  - Pain in extremity [Not Recovered/Not Resolved]
